FAERS Safety Report 6418779-6 (Version None)
Quarter: 2009Q4

REPORT INFORMATION
  Report Type: 
  Country: None (occurrence: None)
  Receive Date: 20091026
  Receipt Date: 20091014
  Transmission Date: 20100525
  Serious: Yes (Hospitalization)
  Sender: FDA-Public Use
  Company Number: 2009AC000082

PATIENT
  Age: 66 Year
  Sex: Male

DRUGS (21)
  1. DIGOXIN [Suspect]
     Dosage: 0.25 MG; PO
     Route: 048
     Dates: start: 20041201, end: 20070801
  2. METOPROLOL [Concomitant]
  3. NEXIUM [Concomitant]
  4. FUROSEMIDE [Concomitant]
  5. SPIRONOLACTONE [Concomitant]
  6. LACTULOSE [Concomitant]
  7. OXYCODONE HCL AND ACETAMINOPHEN [Concomitant]
  8. ENULOSE [Concomitant]
  9. CANASA [Concomitant]
  10. CIPROFLOXACIN [Concomitant]
  11. POTASSIUM CHLORIDE [Concomitant]
  12. MULTI-VITAMIN [Concomitant]
  13. VERAPAMIL [Concomitant]
  14. HYCROCHOLROTHIAZIDE [Concomitant]
  15. NOVASC [Concomitant]
  16. ASPIRIN [Concomitant]
  17. IRON SULFATETHIAMIN COMPOUND TAB [Concomitant]
  18. PEPCID [Concomitant]
  19. COLACE [Concomitant]
  20. SENOKOT [Concomitant]
  21. XANAX [Concomitant]

REACTIONS (22)
  - ABDOMINAL DISTENSION [None]
  - CARDIAC ARREST [None]
  - CARDIAC FAILURE [None]
  - CIRRHOSIS ALCOHOLIC [None]
  - COLITIS [None]
  - COLON ADENOMA [None]
  - ECONOMIC PROBLEM [None]
  - FATIGUE [None]
  - HAEMODIALYSIS [None]
  - HEPATIC CIRRHOSIS [None]
  - HEPATOCELLULAR INJURY [None]
  - HYPERKALAEMIA [None]
  - HYPERTENSION [None]
  - INGUINAL HERNIA [None]
  - MULTIPLE INJURIES [None]
  - OEDEMA PERIPHERAL [None]
  - PERITONITIS BACTERIAL [None]
  - PORTAL HYPERTENSION [None]
  - PROSTATIC SPECIFIC ANTIGEN INCREASED [None]
  - RENAL FAILURE ACUTE [None]
  - THERAPEUTIC AGENT TOXICITY [None]
  - WEIGHT DECREASED [None]
